FAERS Safety Report 24954646 (Version 4)
Quarter: 2025Q2

REPORT INFORMATION
  Report Type: Report from Study
  Country: CA (occurrence: CA)
  Receive Date: 20250211
  Receipt Date: 20250527
  Transmission Date: 20250716
  Serious: Yes (Other)
  Sender: CSL BEHRING
  Company Number: CA-BEH-2024190626

PATIENT
  Age: 27 Year
  Sex: Female

DRUGS (8)
  1. HAEMATE P [Suspect]
     Active Substance: ANTIHEMOPHILIC FACTOR HUMAN
     Indication: Von Willebrand^s disease
     Dosage: 2000 IU, BIW
     Route: 042
     Dates: start: 20230713
  2. HAEMATE P [Suspect]
     Active Substance: ANTIHEMOPHILIC FACTOR HUMAN
     Route: 065
     Dates: start: 20250107
  3. HAEMATE P [Suspect]
     Active Substance: ANTIHEMOPHILIC FACTOR HUMAN
     Route: 065
  4. HAEMATE P [Suspect]
     Active Substance: ANTIHEMOPHILIC FACTOR HUMAN
     Dosage: UNK UNK, BIW
     Route: 042
     Dates: start: 20230713
  5. HAEMATE P [Suspect]
     Active Substance: ANTIHEMOPHILIC FACTOR HUMAN
     Route: 065
     Dates: start: 20250124
  6. HAEMATE P [Suspect]
     Active Substance: ANTIHEMOPHILIC FACTOR HUMAN
     Route: 065
     Dates: start: 20250204
  7. HAEMATE P [Suspect]
     Active Substance: ANTIHEMOPHILIC FACTOR HUMAN
     Route: 065
     Dates: start: 20250207
  8. ZOFRAN [Concomitant]
     Active Substance: ONDANSETRON HYDROCHLORIDE

REACTIONS (46)
  - Anal haemorrhage [Unknown]
  - Haematemesis [Unknown]
  - Haematemesis [Unknown]
  - Haematochezia [Unknown]
  - Vaginal haemorrhage [Not Recovered/Not Resolved]
  - Anal haemorrhage [Not Recovered/Not Resolved]
  - Epistaxis [Unknown]
  - Nausea [Not Recovered/Not Resolved]
  - Vomiting [Not Recovered/Not Resolved]
  - Nausea [Unknown]
  - Infusion site haemorrhage [Not Recovered/Not Resolved]
  - Malaise [Not Recovered/Not Resolved]
  - Heavy menstrual bleeding [Not Recovered/Not Resolved]
  - Product dose omission in error [Unknown]
  - Ill-defined disorder [Unknown]
  - Vomiting [Unknown]
  - Nausea [Unknown]
  - Product closure issue [Unknown]
  - Epistaxis [Unknown]
  - Treatment delayed [Unknown]
  - Infusion related reaction [Unknown]
  - Product closure issue [Unknown]
  - Product preparation issue [Unknown]
  - Fatigue [Unknown]
  - Infusion site pain [Unknown]
  - Infusion site pain [Unknown]
  - Pallor [Recovered/Resolved]
  - Vomiting [Unknown]
  - Vomiting [Unknown]
  - Discomfort [Unknown]
  - Neck mass [Recovered/Resolved]
  - Vomiting [Unknown]
  - Vomiting [Unknown]
  - Nausea [Unknown]
  - Neck pain [Unknown]
  - General physical health deterioration [Unknown]
  - Vomiting [Unknown]
  - Vaginal haemorrhage [Unknown]
  - Infusion site pain [Unknown]
  - Pallor [Unknown]
  - Respiratory tract infection [Not Recovered/Not Resolved]
  - Cough [Not Recovered/Not Resolved]
  - Oropharyngeal pain [Not Recovered/Not Resolved]
  - Pyrexia [Not Recovered/Not Resolved]
  - Illness [Unknown]
  - Discomfort [Unknown]

NARRATIVE: CASE EVENT DATE: 20241221
